FAERS Safety Report 18617675 (Version 1)
Quarter: 2020Q4

REPORT INFORMATION
  Report Type: Spontaneous
  Country: JP (occurrence: JP)
  Receive Date: 20201215
  Receipt Date: 20201215
  Transmission Date: 20210114
  Serious: Yes (Hospitalization, Other)
  Sender: FDA-Public Use
  Company Number: JP-FERRINGPH-2020FE08368

PATIENT
  Age: 76 Year
  Sex: Female

DRUGS (6)
  1. HYDANTOL [Concomitant]
     Active Substance: PHENYTOIN SODIUM
     Indication: SEIZURE
     Route: 065
  2. DESMOPRESSIN KYOWA [Suspect]
     Active Substance: DESMOPRESSIN
     Indication: DIABETES INSIPIDUS
     Dosage: 0.025 UG, DAILY
     Route: 045
     Dates: start: 20191126
  3. DESMOPRESSIN KYOWA [Suspect]
     Active Substance: DESMOPRESSIN
     Dosage: UNK
     Route: 045
     Dates: start: 20181205
  4. DESMOPRESSIN KYOWA [Suspect]
     Active Substance: DESMOPRESSIN
     Dosage: UNK
     Route: 045
     Dates: start: 2017
  5. ADOAIR [Concomitant]
     Active Substance: FLUTICASONE PROPIONATE\SALMETEROL XINAFOATE
     Indication: ASTHMA
     Route: 065
  6. LIPOVAS [SIMVASTATIN] [Concomitant]
     Indication: DYSLIPIDAEMIA
     Route: 065

REACTIONS (16)
  - Nausea [Recovered/Resolved]
  - Nausea [Recovered/Resolved]
  - Dizziness [Unknown]
  - Oedema [Unknown]
  - Hyponatraemia [Unknown]
  - Hypotension [Unknown]
  - Physical deconditioning [Unknown]
  - Chills [Recovered/Resolved]
  - Overdose [Unknown]
  - Decreased appetite [Unknown]
  - Dehydration [Recovered/Resolved]
  - Faeces soft [Recovered/Resolved]
  - Fall [Unknown]
  - Hyponatraemia [Unknown]
  - Hyponatraemia [Unknown]
  - Nausea [Recovered/Resolved]

NARRATIVE: CASE EVENT DATE: 20171110
